FAERS Safety Report 13182168 (Version 1)
Quarter: 2017Q1

REPORT INFORMATION
  Report Type: Spontaneous
  Country: US (occurrence: US)
  Receive Date: 20170202
  Receipt Date: 20170202
  Transmission Date: 20170428
  Serious: Yes (Hospitalization)
  Sender: FDA-Public Use
  Company Number: US-VIFOR (INTERNATIONAL) INC.-VIT-2017-01065

PATIENT
  Sex: Male

DRUGS (23)
  1. NORVASC [Concomitant]
     Active Substance: AMLODIPINE BESYLATE
  2. FERROUS GLUCONATE [Concomitant]
     Active Substance: FERROUS GLUCONATE
  3. TYLENOL [Concomitant]
     Active Substance: ACETAMINOPHEN
  4. CHONDROITIN SULFATE [Concomitant]
     Active Substance: SODIUM CHONDROITIN SULFATE
  5. PREDNISONE. [Concomitant]
     Active Substance: PREDNISONE
  6. TORASEMIDE [Concomitant]
     Active Substance: TORSEMIDE
  7. DUONEB [Concomitant]
     Active Substance: ALBUTEROL SULFATE\IPRATROPIUM BROMIDE
  8. ASCORBIC ACID. [Concomitant]
     Active Substance: ASCORBIC ACID
  9. ERGOCALCIFEROL. [Concomitant]
     Active Substance: ERGOCALCIFEROL
  10. ARANESP [Concomitant]
     Active Substance: DARBEPOETIN ALFA
  11. VELTASSA [Suspect]
     Active Substance: PATIROMER
     Indication: HYPERKALAEMIA
     Route: 048
     Dates: start: 20160517
  12. SYMBICORT [Concomitant]
     Active Substance: BUDESONIDE\FORMOTEROL FUMARATE DIHYDRATE
  13. TERAZOSIN HYDROCHLORIDE. [Concomitant]
     Active Substance: TERAZOSIN HYDROCHLORIDE
  14. CYANOCOBALAMIN. [Concomitant]
     Active Substance: CYANOCOBALAMIN
  15. IMDUR [Concomitant]
     Active Substance: ISOSORBIDE MONONITRATE
  16. LOPRESSOR [Concomitant]
     Active Substance: METOPROLOL TARTRATE
  17. ACETYLSALICYLIC ACID [Concomitant]
     Active Substance: ASPIRIN
  18. COLACE [Concomitant]
     Active Substance: DOCUSATE SODIUM
  19. FISH OIL [Concomitant]
     Active Substance: FISH OIL
  20. VELTASSA [Suspect]
     Active Substance: PATIROMER
     Indication: CHRONIC KIDNEY DISEASE
  21. LIPITOR [Concomitant]
     Active Substance: ATORVASTATIN CALCIUM
  22. SODIUM BICARBONATE. [Concomitant]
     Active Substance: SODIUM BICARBONATE
  23. TRIPLE FLEX [Concomitant]

REACTIONS (2)
  - Inappropriate schedule of drug administration [Unknown]
  - Hospitalisation [Unknown]
